FAERS Safety Report 5527955-6 (Version None)
Quarter: 2007Q4

REPORT INFORMATION
  Report Type: 
  Country: None (occurrence: None)
  Receive Date: 20071123
  Receipt Date: 20071106
  Transmission Date: 20080405
  Serious: Yes (Hospitalization)
  Sender: FDA-Public Use
  Company Number: 8027867

PATIENT
  Age: 7 Year
  Sex: Female

DRUGS (4)
  1. KEPPRA [Suspect]
     Indication: CONVULSION
     Dosage: 1.5 ML 2/D PO
     Route: 048
     Dates: start: 20071005, end: 20071107
  2. LAMICTAL [Concomitant]
  3. CLONIDINE [Concomitant]
  4. MIRALAX [Concomitant]

REACTIONS (7)
  - DEHYDRATION [None]
  - ILL-DEFINED DISORDER [None]
  - LETHARGY [None]
  - MALAISE [None]
  - ORAL INTAKE REDUCED [None]
  - PYREXIA [None]
  - WHEEZING [None]
